FAERS Safety Report 21847927 (Version 1)
Quarter: 2023Q1

REPORT INFORMATION
  Report Type: Spontaneous
  Country: PT (occurrence: PT)
  Receive Date: 20230111
  Receipt Date: 20230111
  Transmission Date: 20230418
  Serious: Yes (Death, Hospitalization)
  Sender: FDA-Public Use
  Company Number: PT-MACLEODS PHARMACEUTICALS US LTD-MAC2022039135

PATIENT

DRUGS (4)
  1. LEVOFLOXACIN [Suspect]
     Active Substance: LEVOFLOXACIN
     Indication: Product used for unknown indication
     Dosage: UNK
     Route: 065
  2. ITRACONAZOLE [Suspect]
     Active Substance: ITRACONAZOLE
     Indication: Product used for unknown indication
     Dosage: UNK
     Route: 065
  3. ENOXAPARIN [Suspect]
     Active Substance: ENOXAPARIN
     Indication: Product used for unknown indication
     Dosage: UNK
     Route: 065
  4. PREDNISOLONE [Concomitant]
     Active Substance: PREDNISOLONE
     Indication: Asthma-chronic obstructive pulmonary disease overlap syndrome
     Dosage: 40 MILLIGRAM, QD
     Route: 048

REACTIONS (6)
  - Gastrointestinal haemorrhage [Fatal]
  - Hypocoagulable state [Fatal]
  - Shock haemorrhagic [Fatal]
  - Bronchopulmonary aspergillosis [Recovered/Resolved]
  - Condition aggravated [Recovered/Resolved]
  - Cachexia [Recovered/Resolved]
